FAERS Safety Report 22202406 (Version 2)
Quarter: 2023Q2

REPORT INFORMATION
  Report Type: Spontaneous
  Country: JP (occurrence: JP)
  Receive Date: 20230412
  Receipt Date: 20230503
  Transmission Date: 20230722
  Serious: No
  Sender: FDA-Public Use
  Company Number: JP-ONO-2023JP004068

PATIENT
  Age: 55 Year
  Sex: Male

DRUGS (4)
  1. BRAFTOVI [Suspect]
     Active Substance: ENCORAFENIB
     Indication: Colon cancer
     Dosage: UNK
     Route: 048
     Dates: start: 20230119
  2. MEKTOVI [Suspect]
     Active Substance: BINIMETINIB
     Indication: Melanocytic naevus
     Dosage: UNK
     Route: 048
     Dates: start: 20230216
  3. MEKTOVI [Suspect]
     Active Substance: BINIMETINIB
     Indication: Seborrhoeic keratosis
  4. ERBITUX [Concomitant]
     Active Substance: CETUXIMAB
     Indication: Colon cancer
     Dosage: UNK
     Route: 065
     Dates: start: 20230119

REACTIONS (3)
  - Seborrhoeic keratosis [Recovering/Resolving]
  - Melanocytic naevus [Recovering/Resolving]
  - Off label use [Unknown]

NARRATIVE: CASE EVENT DATE: 20230216
